FAERS Safety Report 6134301-6 (Version None)
Quarter: 2009Q1

REPORT INFORMATION
  Report Type: 
  Country: None (occurrence: None)
  Receive Date: 20090325
  Receipt Date: 20090306
  Transmission Date: 20090719
  Serious: Yes (Hospitalization)
  Sender: FDA-Public Use
  Company Number: 2009AP000689

PATIENT
  Age: 12 Day
  Sex: Male

DRUGS (2)
  1. LAMOTRIGINE [Suspect]
     Indication: POISONING DELIBERATE
     Dates: start: 20070101
  2. ACETAMINOPHEN [Suspect]
     Indication: POISONING DELIBERATE
     Dates: start: 20070101

REACTIONS (11)
  - ANTICONVULSANT DRUG LEVEL ABOVE THERAPEUTIC [None]
  - CONVULSION NEONATAL [None]
  - DYSKINESIA [None]
  - FACTITIOUS DISORDER [None]
  - FEEDING DISORDER NEONATAL [None]
  - GRAND MAL CONVULSION [None]
  - HAEMATEMESIS [None]
  - IRRITABILITY [None]
  - POISONING DELIBERATE [None]
  - SOCIAL AVOIDANT BEHAVIOUR [None]
  - VICTIM OF CHILD ABUSE [None]
